FAERS Safety Report 14512102 (Version 2)
Quarter: 2018Q1

REPORT INFORMATION
  Report Type: Spontaneous
  Country: CN (occurrence: CN)
  Receive Date: 20180209
  Receipt Date: 20180327
  Transmission Date: 20180509
  Serious: Yes (Other)
  Sender: FDA-Public Use
  Company Number: CN-PFIZER INC-2018055633

PATIENT
  Age: 9 Year
  Sex: Male

DRUGS (2)
  1. METHOTREXATE SODIUM. [Suspect]
     Active Substance: METHOTREXATE SODIUM
     Indication: ACUTE LYMPHOCYTIC LEUKAEMIA
     Dosage: UNK (HD-MTX 5 G/M2, 1/10 OF THE TOTAL DOSE WAS INFUSED WITHIN 0.5 HOURS REMAINING DOSE OVER)
     Route: 042
  2. LIPOSOMAL AMPHOTERICIN B [Concomitant]
     Active Substance: AMPHOTERICIN B
     Indication: ANTIFUNGAL TREATMENT
     Dosage: UNK

REACTIONS (6)
  - Epilepsy [Unknown]
  - Drug level increased [Unknown]
  - Liver injury [Unknown]
  - Electrolyte imbalance [Unknown]
  - Mouth ulceration [Unknown]
  - Cardiomyopathy [Unknown]
